FAERS Safety Report 4642303-1 (Version None)
Quarter: 2005Q2

REPORT INFORMATION
  Report Type: 
  Country: None (occurrence: None)
  Receive Date: 20050420
  Receipt Date: 20050411
  Transmission Date: 20051028
  Serious: No
  Sender: FDA-Public Use
  Company Number: 2005AC00573

PATIENT
  Age: 40 Year
  Sex: Male

DRUGS (4)
  1. PROPOFOL [Suspect]
     Indication: GENERAL ANAESTHESIA
  2. SUFENTANIL CITRATE [Suspect]
     Indication: GENERAL ANAESTHESIA
  3. VERCURONIUM [Concomitant]
  4. MIDAZOLAM HCL [Concomitant]

REACTIONS (3)
  - ANAESTHETIC COMPLICATION [None]
  - HYPERKALAEMIA [None]
  - METABOLIC ACIDOSIS [None]
